FAERS Safety Report 21235902 (Version 3)
Quarter: 2022Q3

REPORT INFORMATION
  Report Type: Spontaneous
  Country: US (occurrence: US)
  Receive Date: 20220821
  Receipt Date: 20220913
  Transmission Date: 20221027
  Serious: Yes (Hospitalization)
  Sender: FDA-Public Use
  Company Number: US-EXELIXIS-CABO-22054391

PATIENT
  Age: 63 Year
  Sex: Male

DRUGS (24)
  1. OPDIVO [Suspect]
     Active Substance: NIVOLUMAB
     Indication: Renal cell carcinoma
     Route: 065
     Dates: start: 20220616
  2. CABOMETYX [Suspect]
     Active Substance: CABOZANTINIB S-MALATE
     Indication: Renal cell carcinoma
     Dosage: 40 MG, QD
     Route: 065
     Dates: start: 20220616
  3. CABOMETYX [Suspect]
     Active Substance: CABOZANTINIB S-MALATE
     Dosage: 40 MG, QD
     Route: 065
     Dates: end: 20220812
  4. CABOMETYX [Suspect]
     Active Substance: CABOZANTINIB S-MALATE
     Dosage: 40 MG QD MONDAY TO FRIDAY, OFF SATURDAY AND SUNDAY
     Route: 065
  5. CABOMETYX [Suspect]
     Active Substance: CABOZANTINIB S-MALATE
     Dosage: 40MG, QD
     Route: 065
  6. FERROUS SULFATE [Concomitant]
     Active Substance: FERROUS SULFATE
  7. DEXILANT [Concomitant]
     Active Substance: DEXLANSOPRAZOLE
  8. DEXILANT [Concomitant]
     Active Substance: DEXLANSOPRAZOLE
  9. METOPROLOL TARTRATE [Concomitant]
     Active Substance: METOPROLOL TARTRATE
  10. METOPROLOL TARTRATE [Concomitant]
     Active Substance: METOPROLOL TARTRATE
  11. LOSARTAN [Concomitant]
     Active Substance: LOSARTAN
  12. LOSARTAN [Concomitant]
     Active Substance: LOSARTAN
  13. LOPERAMIDE [Concomitant]
     Active Substance: LOPERAMIDE
  14. LOPERAMIDE [Concomitant]
     Active Substance: LOPERAMIDE
  15. TYLENOL EXTRA STRENGTH [Concomitant]
     Active Substance: ACETAMINOPHEN
  16. TYLENOL EXTRA STRENGTH [Concomitant]
     Active Substance: ACETAMINOPHEN
  17. ONDANSETRON [Concomitant]
     Active Substance: ONDANSETRON
  18. ONDANSETRON [Concomitant]
     Active Substance: ONDANSETRON
  19. HYDROCORTISONE [Concomitant]
     Active Substance: HYDROCORTISONE
  20. AMLODIPINE [Concomitant]
     Active Substance: AMLODIPINE BESYLATE
  21. AMLODIPINE [Concomitant]
     Active Substance: AMLODIPINE BESYLATE
  22. BENADRYL [Concomitant]
     Active Substance: DIPHENHYDRAMINE HYDROCHLORIDE
  23. PERIDEX [Concomitant]
     Active Substance: CHLORHEXIDINE GLUCONATE
  24. HYDROCORTIZON [HYDROCORTISONE] [Concomitant]

REACTIONS (14)
  - Pyrexia [Recovered/Resolved]
  - Diarrhoea [Unknown]
  - Blister [Recovered/Resolved]
  - Weight increased [Unknown]
  - Erythema [Recovered/Resolved]
  - Pruritus [Recovered/Resolved]
  - Fatigue [Not Recovered/Not Resolved]
  - Dysgeusia [Recovered/Resolved]
  - Blood pressure increased [Recovered/Resolved]
  - Decreased appetite [Recovering/Resolving]
  - Stomatitis [Unknown]
  - Product dose omission issue [Unknown]
  - Inappropriate schedule of product administration [Unknown]
  - Memory impairment [Unknown]
